FAERS Safety Report 5976539-4 (Version None)
Quarter: 2008Q4

REPORT INFORMATION
  Report Type: 
  Country: None (occurrence: None)
  Receive Date: 20081125
  Receipt Date: 20081121
  Transmission Date: 20090506
  Serious: Yes (Other)
  Sender: FDA-Public Use
  Company Number: 2008S1020181

PATIENT
  Sex: Female

DRUGS (1)
  1. GLYBURIDE [Suspect]
     Indication: GESTATIONAL DIABETES
     Dosage: 12.5 MG; INTRA-ARTICULAR
     Route: 014

REACTIONS (4)
  - DRUG EXPOSURE DURING PREGNANCY [None]
  - PLACENTAL INFARCTION [None]
  - PRE-ECLAMPSIA [None]
  - STILLBIRTH [None]
